FAERS Safety Report 16918927 (Version 2)
Quarter: 2019Q4

REPORT INFORMATION
  Report Type: Spontaneous
  Country: US (occurrence: US)
  Receive Date: 20191015
  Receipt Date: 20191018
  Transmission Date: 20200122
  Serious: No
  Sender: FDA-Public Use
  Company Number: US-PFIZER INC-2019443107

PATIENT
  Age: 52 Year
  Sex: Female

DRUGS (1)
  1. XELJANZ XR [Suspect]
     Active Substance: TOFACITINIB CITRATE
     Indication: RHEUMATOID ARTHRITIS
     Dosage: 11 MG, 1X/DAY
     Dates: start: 20191001, end: 20191015

REACTIONS (8)
  - Drug hypersensitivity [Unknown]
  - Localised infection [Unknown]
  - Malaise [Unknown]
  - Oral herpes [Unknown]
  - Lip blister [Unknown]
  - Tongue blistering [Unknown]
  - Immune system disorder [Unknown]
  - Oral fungal infection [Unknown]

NARRATIVE: CASE EVENT DATE: 201910
